FAERS Safety Report 8287027-7 (Version None)
Quarter: 2012Q2

REPORT INFORMATION
  Report Type: 
  Country: None (occurrence: None)
  Receive Date: 20120416
  Receipt Date: 20120410
  Transmission Date: 20120825
  Serious: Yes (Death)
  Sender: FDA-Public Use
  Company Number: FR-ASTRAZENECA-2012SE20237

PATIENT
  Age: 61 Year
  Sex: Male

DRUGS (12)
  1. ESIDRIX [Suspect]
     Route: 048
     Dates: start: 20090113
  2. SERC [Suspect]
     Route: 048
     Dates: start: 20110527
  3. ATACAND [Suspect]
     Route: 048
     Dates: start: 20090113
  4. HALDOL [Suspect]
     Dosage: 2 MG/ML
     Route: 048
     Dates: start: 20041027, end: 20090716
  5. LOXAPINE HCL [Suspect]
     Route: 048
     Dates: start: 20081220
  6. ATACAND [Suspect]
     Route: 048
     Dates: start: 20090102, end: 20090112
  7. TRIMEPRAZINE TARTRATE [Suspect]
     Route: 048
     Dates: start: 20081220
  8. IMOVANE [Suspect]
     Route: 048
     Dates: start: 20041027
  9. AMLODIPINE BESYLATE [Suspect]
     Route: 048
     Dates: start: 20081230
  10. ATARAX [Suspect]
     Route: 048
     Dates: start: 20101220
  11. VASTAREL [Suspect]
     Route: 048
     Dates: start: 20110527
  12. RISPERIDONE [Suspect]
     Indication: SCHIZOPHRENIA, PARANOID TYPE
     Route: 050
     Dates: start: 20100708, end: 20110722

REACTIONS (5)
  - CARDIAC ARREST [None]
  - ELECTROCARDIOGRAM QT PROLONGED [None]
  - BUNDLE BRANCH BLOCK LEFT [None]
  - SINUS TACHYCARDIA [None]
  - BUNDLE BRANCH BLOCK RIGHT [None]
